FAERS Safety Report 7902269-5 (Version None)
Quarter: 2011Q4

REPORT INFORMATION
  Report Type: 
  Country: None (occurrence: None)
  Receive Date: 20111108
  Receipt Date: 20111103
  Transmission Date: 20120403
  Serious: Yes (Death, Other)
  Sender: FDA-Public Use
  Company Number: GXBR2010US02187

PATIENT
  Sex: Female
  Weight: 136.5 kg

DRUGS (17)
  1. PREDNISONE TAB [Suspect]
     Indication: ASTHMA
     Dosage: 20 MG, UNK
  2. CELEXA [Concomitant]
     Dosage: 20 MG, QD
  3. INSULIN [Concomitant]
     Indication: DIABETES MELLITUS
     Dosage: UNK DF, UNK
  4. NITROGLYCERIN [Concomitant]
     Indication: CHEST PAIN
     Dosage: UNK DF, PRN
     Route: 060
  5. ALPRAZOLAM [Concomitant]
     Dosage: UNK MG, QID
  6. BENADRYL ^WARNER-LAMBERT^               /USA/ [Concomitant]
     Dosage: UNK MG, Q4H
  7. HYDROCODONE BITARTRATE [Concomitant]
     Indication: PAIN
     Dosage: UNK MG, TID
  8. ISOSORBIDE MONONITRATE [Concomitant]
     Indication: CARDIAC DISORDER
     Dosage: 30 MG, QD
  9. SPIRONOLACTONE [Concomitant]
     Dosage: UNK MG, BID
  10. BUSPAR [Concomitant]
     Dosage: UNK MG, Q8H
  11. BYSTOLIC [Concomitant]
     Indication: CARDIAC DISORDER
     Dosage: 5 MG, UNK
  12. LYRICA [Concomitant]
     Indication: BACK PAIN
     Dosage: 50 MG, QD
  13. COZAAR [Concomitant]
     Indication: HYPERTENSION
     Dosage: UNK MG, BID
  14. PROTONIX [Concomitant]
     Dosage: 40 MG, BID
  15. TESSALON [Concomitant]
     Indication: COUGH
     Dosage: 100 MG, UNK
  16. DIURETICS [Concomitant]
     Indication: OEDEMA
     Dosage: UNK DF, UNK
  17. OXYGEN [Concomitant]
     Indication: DYSPNOEA
     Dosage: UNK DF, UNK

REACTIONS (6)
  - BLOOD GLUCOSE INCREASED [None]
  - HYPERTENSION [None]
  - BLOOD PRESSURE INCREASED [None]
  - WEIGHT INCREASED [None]
  - CARDIAC FAILURE [None]
  - DIABETES MELLITUS [None]
